FAERS Safety Report 6911620-4 (Version None)
Quarter: 2010Q3

REPORT INFORMATION
  Report Type: 
  Country: None (occurrence: None)
  Receive Date: 20100806
  Receipt Date: 20100408
  Transmission Date: 20110219
  Serious: Yes (Other)
  Sender: FDA-Public Use
  Company Number: DE-BAYER-201034336GPV

PATIENT
  Age: 42 Year
  Sex: Female
  Weight: 81 kg

DRUGS (1)
  1. QLAIRA [Suspect]
     Indication: CONTRACEPTION
     Route: 048
     Dates: start: 20090701, end: 20090801

REACTIONS (6)
  - FUNGAL INFECTION [None]
  - HEADACHE [None]
  - HYPOMENORRHOEA [None]
  - METRORRHAGIA [None]
  - OEDEMA [None]
  - SCINTILLATING SCOTOMA [None]
